FAERS Safety Report 7183628-8 (Version None)
Quarter: 2010Q4

REPORT INFORMATION
  Report Type: 
  Country: None (occurrence: None)
  Receive Date: 20101220
  Receipt Date: 20101220
  Transmission Date: 20110411
  Serious: Yes (Hospitalization)
  Sender: FDA-Public Use
  Company Number: None

PATIENT
  Age: 90 Year
  Sex: Male
  Weight: 77.6 kg

DRUGS (20)
  1. ASA [Suspect]
     Indication: CARDIOVASCULAR EVENT PROPHYLAXIS
     Dosage: 81MG X 2 DAILY PO  CHRONIC
     Route: 048
  2. PREDNISONE [Suspect]
     Indication: SPINAL COLUMN STENOSIS
     Dosage: 5MG DAILY PO  CHRONIC
     Route: 048
  3. SENOKET [Concomitant]
  4. M.V.I. [Concomitant]
  5. BUMEX [Concomitant]
  6. GABAPENTIN [Concomitant]
  7. CYMBALTA [Concomitant]
  8. POTASSIUM [Concomitant]
  9. TIMOLOL [Concomitant]
  10. SINEMET [Concomitant]
  11. CRANBERRY CAPSULE [Concomitant]
  12. VIT D3 [Concomitant]
  13. VITAMIN-MINERAL COMPOUND TAB [Concomitant]
  14. KEFLEX [Concomitant]
  15. NORVASC [Concomitant]
  16. ENALAPRIL [Concomitant]
  17. PREDNISONE [Concomitant]
  18. TYLENOL [Concomitant]
  19. TRAVATAN [Concomitant]
  20. MIRALAX [Concomitant]

REACTIONS (7)
  - BLOOD PRESSURE INADEQUATELY CONTROLLED [None]
  - COLITIS ISCHAEMIC [None]
  - GASTRIC DISORDER [None]
  - HAEMORRHAGIC ANAEMIA [None]
  - HIATUS HERNIA [None]
  - RENAL FAILURE ACUTE [None]
  - UPPER GASTROINTESTINAL HAEMORRHAGE [None]
